FAERS Safety Report 18051543 (Version 4)
Quarter: 2020Q3

REPORT INFORMATION
  Report Type: Spontaneous
  Country: CA (occurrence: CA)
  Receive Date: 20200721
  Receipt Date: 20200820
  Transmission Date: 20201103
  Serious: Yes (Other)
  Sender: FDA-Public Use
  Company Number: CA-BAUSCH-BL-2020-017077

PATIENT
  Age: 68 Year
  Sex: Female
  Weight: 64.47 kg

DRUGS (7)
  1. WELLBUTRIN SR [Suspect]
     Active Substance: BUPROPION HYDROCHLORIDE
     Indication: ANTIDEPRESSANT THERAPY
     Dosage: 150 IN THE MORNING AND 150 IN THE EVENING
     Route: 048
     Dates: start: 20080301
  2. WELLBUTRIN SR [Suspect]
     Active Substance: BUPROPION HYDROCHLORIDE
     Dosage: BACK UP TO 300 MG A DAY
     Route: 048
  3. WELLBUTRIN SR [Suspect]
     Active Substance: BUPROPION HYDROCHLORIDE
     Dosage: REDUCED TO 200 MG
     Route: 048
  4. WELLBUTRIN SR [Suspect]
     Active Substance: BUPROPION HYDROCHLORIDE
     Dosage: REDUCED TO 100 MG
     Route: 048
  5. WELLBUTRIN SR [Suspect]
     Active Substance: BUPROPION HYDROCHLORIDE
     Dosage: STARTED APPROXIMATELY 3 YEARS FROM THE REPORT
     Route: 048
     Dates: start: 201610
  6. WELLBUTRIN SR [Suspect]
     Active Substance: BUPROPION HYDROCHLORIDE
     Dosage: REDUCED TO 250 MG
     Route: 048
  7. WELLBUTRIN SR [Suspect]
     Active Substance: BUPROPION HYDROCHLORIDE
     Dosage: REDUCED TO 150 MG
     Route: 048

REACTIONS (3)
  - Therapeutic response unexpected [Unknown]
  - Leukaemia [Not Recovered/Not Resolved]
  - Symptom recurrence [Not Recovered/Not Resolved]

NARRATIVE: CASE EVENT DATE: 2008
